FAERS Safety Report 17867854 (Version 1)
Quarter: 2020Q2

REPORT INFORMATION
  Report Type: Spontaneous
  Country: RO (occurrence: RO)
  Receive Date: 20200606
  Receipt Date: 20200606
  Transmission Date: 20200714
  Serious: Yes (Other)
  Sender: FDA-Public Use
  Company Number: RO-AUROBINDO-AUR-APL-2020-026920

PATIENT
  Age: 64 Year
  Sex: Female

DRUGS (1)
  1. ALENDRONIC ACID TABLETS [Suspect]
     Active Substance: ALENDRONIC ACID
     Indication: OSTEOPOROSIS
     Dosage: 70 MILLIGRAM, EVERY WEEK
     Route: 048

REACTIONS (3)
  - Atypical femur fracture [Recovered/Resolved]
  - Injury [Recovered/Resolved]
  - Femur fracture [Recovered/Resolved]
